FAERS Safety Report 6425347-9 (Version None)
Quarter: 2009Q4

REPORT INFORMATION
  Report Type: 
  Country: None (occurrence: None)
  Receive Date: 20091103
  Receipt Date: 20091027
  Transmission Date: 20100525
  Serious: Yes (Hospitalization)
  Sender: FDA-Public Use
  Company Number: A0813039A

PATIENT
  Age: 70 Year
  Sex: Female

DRUGS (9)
  1. AVANDIA [Suspect]
     Indication: DIABETES MELLITUS
     Dosage: 8MG PER DAY
     Route: 048
     Dates: start: 20070401, end: 20071217
  2. SINEMET [Concomitant]
  3. PREMARIN [Concomitant]
     Dates: end: 20071217
  4. NEXIUM [Concomitant]
     Dates: end: 20071217
  5. GLUCOPHAGE [Concomitant]
     Dates: end: 20071217
  6. LOVASTATIN [Concomitant]
  7. ACTONEL [Concomitant]
  8. INSULIN [Concomitant]
  9. OMEPRAZOLE [Concomitant]

REACTIONS (2)
  - CARDIAC FAILURE CONGESTIVE [None]
  - DEVICE OCCLUSION [None]
